FAERS Safety Report 10173284 (Version 1)
Quarter: 2014Q2

REPORT INFORMATION
  Report Type: Spontaneous
  Country: CN (occurrence: CN)
  Receive Date: 20140515
  Receipt Date: 20140515
  Transmission Date: 20141212
  Serious: Yes (Other)
  Sender: FDA-Public Use
  Company Number: CN-BAXTER-2014BAX023360

PATIENT
  Age: 78 Year
  Sex: Female
  Weight: 55 kg

DRUGS (1)
  1. 5% GLUCOSE  INJECTION [Suspect]
     Indication: MEDICATION DILUTION
     Route: 042
     Dates: start: 20130417, end: 20130419

REACTIONS (1)
  - Urticaria [Recovering/Resolving]
